FAERS Safety Report 15142274 (Version 1)
Quarter: 2018Q3

REPORT INFORMATION
  Report Type: Spontaneous
  Country: US (occurrence: US)
  Receive Date: 20180713
  Receipt Date: 20180713
  Transmission Date: 20181010
  Serious: No
  Sender: FDA-Public Use
  Company Number: US-GLAXOSMITHKLINE-US2018122662

PATIENT
  Sex: Female

DRUGS (2)
  1. EQUATE NICOTINE [Suspect]
     Active Substance: NICOTINE
     Indication: PRODUCT USED FOR UNKNOWN INDICATION
     Dosage: 14 MG, QD
     Dates: start: 20180527, end: 20180531
  2. EQUATE NICOTINE [Suspect]
     Active Substance: NICOTINE
     Dosage: 14 MG, UNK
     Dates: start: 20180527, end: 20180531

REACTIONS (1)
  - Drug ineffective [Unknown]
